FAERS Safety Report 8176136-9 (Version None)
Quarter: 2012Q1

REPORT INFORMATION
  Report Type: 
  Country: None (occurrence: None)
  Receive Date: 20120301
  Receipt Date: 20120222
  Transmission Date: 20120608
  Serious: Yes (Other)
  Sender: FDA-Public Use
  Company Number: US-BAYER-2011-056987

PATIENT
  Age: 25 Year
  Sex: Female
  Weight: 108.84 kg

DRUGS (2)
  1. FLOVENT [Concomitant]
  2. DROSPIRENONE AND ETHINYL ESTRADIOL [Suspect]
     Indication: ACNE
     Dosage: UNK
     Dates: start: 20090401, end: 20100401

REACTIONS (4)
  - GALLBLADDER DISORDER [None]
  - INJURY [None]
  - ABDOMINAL PAIN [None]
  - CHOLECYSTITIS CHRONIC [None]
